FAERS Safety Report 9192111 (Version 1)
Quarter: 2013Q1

REPORT INFORMATION
  Report Type: Spontaneous
  Country: US (occurrence: None)
  Receive Date: 20130326
  Receipt Date: 20130326
  Transmission Date: 20140127
  Serious: Yes (Other)
  Sender: FDA-Public Use
  Company Number: None

PATIENT
  Age: 35 Year
  Sex: Male
  Weight: 100.25 kg

DRUGS (4)
  1. RISPERDAL [Suspect]
     Indication: SCHIZOPHRENIA
     Dates: start: 20120620, end: 20130303
  2. HALDOL [Suspect]
     Indication: BIPOLAR DISORDER
     Dates: start: 20120620, end: 20130302
  3. NYSTATIN-ACTAVIS [Concomitant]
  4. HYDROCORTISONE [Concomitant]

REACTIONS (3)
  - Delusion [None]
  - Gynaecomastia [None]
  - Feeling abnormal [None]
